FAERS Safety Report 5057902-5 (Version None)
Quarter: 2006Q3

REPORT INFORMATION
  Report Type: 
  Country: None (occurrence: None)
  Receive Date: 20060721
  Receipt Date: 20060329
  Transmission Date: 20061208
  Serious: No
  Sender: FDA-Public Use
  Company Number: US-GLAXOSMITHKLINE-A0599537A

PATIENT
  Sex: Female

DRUGS (4)
  1. AVANDIA [Suspect]
  2. SYNTHROID [Concomitant]
  3. HYZAAR [Concomitant]
  4. METFORMIN [Concomitant]

REACTIONS (1)
  - DRUG INEFFECTIVE [None]
